FAERS Safety Report 4588032-4 (Version None)
Quarter: 2005Q1

REPORT INFORMATION
  Report Type: 
  Country: None (occurrence: None)
  Receive Date: 20050216
  Receipt Date: 20050201
  Transmission Date: 20050727
  Serious: Yes (Hospitalization)
  Sender: FDA-Public Use
  Company Number: FR_050205741

PATIENT
  Age: 71 Year
  Sex: Female

DRUGS (5)
  1. PROZAC [Suspect]
  2. PREVISCAN (FLUINDIONE) [Concomitant]
  3. IMODIUM [Concomitant]
  4. LASILIX (FUROSEMIDE) [Concomitant]
  5. ZOLPIDEM TARTRATE [Concomitant]

REACTIONS (6)
  - DRUG INTERACTION [None]
  - HAEMOGLOBIN DECREASED [None]
  - INFLAMMATION [None]
  - INTERNATIONAL NORMALISED RATIO INCREASED [None]
  - OVERDOSE [None]
  - SUBCUTANEOUS HAEMATOMA [None]
